FAERS Safety Report 24111139 (Version 1)
Quarter: 2024Q3

REPORT INFORMATION
  Report Type: Spontaneous
  Country: NL (occurrence: NL)
  Receive Date: 20240718
  Receipt Date: 20240718
  Transmission Date: 20241016
  Serious: Yes (Other)
  Sender: AVERITAS
  Company Number: NL-GRUNENTHAL-2024-122955

PATIENT
  Age: 21 Year
  Sex: Female

DRUGS (1)
  1. QUTENZA [Suspect]
     Active Substance: CAPSAICIN
     Indication: Product used for unknown indication
     Dosage: UNK
     Route: 003
     Dates: start: 20240710, end: 20240710

REACTIONS (5)
  - Syncope [Recovering/Resolving]
  - Application site pain [Unknown]
  - Blood pressure decreased [Recovering/Resolving]
  - Product use issue [Unknown]
  - Nausea [Unknown]

NARRATIVE: CASE EVENT DATE: 20240710
